FAERS Safety Report 11534394 (Version 1)
Quarter: 2015Q3

REPORT INFORMATION
  Report Type: Spontaneous
  Country: FI (occurrence: FI)
  Receive Date: 20150922
  Receipt Date: 20150922
  Transmission Date: 20151125
  Serious: Yes (Other)
  Sender: FDA-Public Use
  Company Number: FI-ACCORD-033772

PATIENT
  Age: 55 Year
  Sex: Male

DRUGS (2)
  1. GEMCITABINE/GEMCITABINE HYDROCHLORIDE [Suspect]
     Active Substance: GEMCITABINE\GEMCITABINE HYDROCHLORIDE
     Indication: BLADDER CANCER
     Dosage: ON THE 1ST DAY RECEIVED AT DOSE 1000 MG/M2 AND ON 15TH DAY RECEIVED 1000 MG/M2.
  2. CISPLATIN. [Suspect]
     Active Substance: CISPLATIN
     Indication: BLADDER CANCER
     Dosage: ON THE 2ND DAY RECEIVED AT DOSE 70 MG/M2.

REACTIONS (10)
  - Cardiac failure [Unknown]
  - Stomatitis [Unknown]
  - Necrosis [Unknown]
  - Cyanosis [Unknown]
  - Peripheral ischaemia [None]
  - Dry skin [Unknown]
  - Ulcer [Unknown]
  - Finger amputation [None]
  - Pericardial effusion [None]
  - Sepsis [None]
